FAERS Safety Report 15567428 (Version 1)
Quarter: 2018Q4

REPORT INFORMATION
  Report Type: Spontaneous
  Country: US (occurrence: US)
  Receive Date: 20181030
  Receipt Date: 20181030
  Transmission Date: 20190205
  Serious: No
  Sender: FDA-Public Use
  Company Number: US-PFIZER INC-2018434990

PATIENT
  Age: 52 Year
  Sex: Female
  Weight: 73.94 kg

DRUGS (1)
  1. SUTENT [Suspect]
     Active Substance: SUNITINIB MALATE
     Indication: RENAL CANCER STAGE III
     Dosage: 37.5 MG, CYCLIC (ONCE A DAY BY MOUTH FOR 14 DAYS ON AND 7 DAYS OFF)
     Route: 048
     Dates: start: 201807

REACTIONS (1)
  - Rash erythematous [Recovered/Resolved]

NARRATIVE: CASE EVENT DATE: 201809
